FAERS Safety Report 6812161-5 (Version None)
Quarter: 2010Q3

REPORT INFORMATION
  Report Type: 
  Country: None (occurrence: None)
  Receive Date: 20100701
  Receipt Date: 20100616
  Transmission Date: 20110219
  Serious: No
  Sender: FDA-Public Use
  Company Number: US-ABBOTT-10P-163-0652831-00

PATIENT
  Sex: Male
  Weight: 52.21 kg

DRUGS (9)
  1. NORVIR [Suspect]
     Indication: HIV INFECTION
     Route: 048
     Dates: start: 20100612, end: 20100615
  2. NORVIR [Suspect]
     Indication: HIV INFECTION
     Route: 048
     Dates: start: 20040101, end: 20100612
  3. NORVIR [Suspect]
     Indication: HIV INFECTION
     Route: 048
     Dates: start: 20030101, end: 20030101
  4. GABAPENTIN [Concomitant]
     Indication: OSTEOARTHRITIS
     Route: 048
  5. FLEXERIL [Concomitant]
     Indication: PRODUCT USED FOR UNKNOWN INDICATION
     Route: 048
  6. TRUVADA [Concomitant]
     Indication: HIV INFECTION
     Route: 048
  7. REYATAZ [Concomitant]
     Indication: HIV INFECTION
     Route: 048
  8. TRAMADOL [Concomitant]
     Indication: RHEUMATOID ARTHRITIS
     Dates: end: 20100614
  9. ACETAMINOPHEN AND HYDROCODONE BITARTRATE [Concomitant]
     Indication: ARTHRALGIA
     Dosage: 7.5/500
     Route: 048

REACTIONS (12)
  - ABDOMINAL PAIN UPPER [None]
  - DIARRHOEA [None]
  - DISTURBANCE IN ATTENTION [None]
  - DIZZINESS [None]
  - DYSPEPSIA [None]
  - MALAISE [None]
  - MUSCLE SPASMS [None]
  - NAUSEA [None]
  - ORAL DISCOMFORT [None]
  - RHEUMATOID ARTHRITIS [None]
  - VISUAL BRIGHTNESS [None]
  - VOMITING [None]
